FAERS Safety Report 24111647 (Version 1)
Quarter: 2024Q3

REPORT INFORMATION
  Report Type: Report from Study
  Country: US (occurrence: None)
  Receive Date: 20240718
  Receipt Date: 20240718
  Transmission Date: 20241016
  Serious: Yes (Other)
  Sender: ASTRAZENECA
  Company Number: 2020SF58320

PATIENT
  Sex: Male

DRUGS (1)
  1. CALQUENCE [Suspect]
     Active Substance: ACALABRUTINIB
     Indication: Chronic lymphocytic leukaemia
     Route: 048

REACTIONS (12)
  - Blood pressure increased [Unknown]
  - Myalgia [Unknown]
  - Fatigue [Recovering/Resolving]
  - Diarrhoea [Unknown]
  - Drug intolerance [Unknown]
  - Dysphagia [Unknown]
  - Chest pain [Unknown]
  - Lymphadenopathy [Unknown]
  - Weight decreased [Unknown]
  - Hyponatraemia [Unknown]
  - Polyuria [Unknown]
  - Renal impairment [Recovering/Resolving]
